FAERS Safety Report 17560230 (Version 1)
Quarter: 2020Q1

REPORT INFORMATION
  Report Type: Spontaneous
  Country: JP (occurrence: JP)
  Receive Date: 20200319
  Receipt Date: 20200319
  Transmission Date: 20200409
  Serious: Yes (Death)
  Sender: FDA-Public Use
  Company Number: NVSJ2020JP003416

PATIENT
  Age: 55 Year
  Sex: Female

DRUGS (1)
  1. AFINITOR [Suspect]
     Active Substance: EVEROLIMUS
     Indication: BREAST CANCER
     Dosage: 10 MG
     Route: 048
     Dates: start: 20200107, end: 20200305

REACTIONS (5)
  - Dizziness [Fatal]
  - Pyrexia [Fatal]
  - Concomitant disease aggravated [Unknown]
  - Decreased activity [Unknown]
  - Interstitial lung disease [Fatal]

NARRATIVE: CASE EVENT DATE: 20200303
